FAERS Safety Report 16995033 (Version 3)
Quarter: 2019Q4

REPORT INFORMATION
  Report Type: Spontaneous
  Country: US (occurrence: US)
  Receive Date: 20191105
  Receipt Date: 20191217
  Transmission Date: 20200122
  Serious: Yes (Other)
  Sender: FDA-Public Use
  Company Number: US-ALKERMES INC.-ALK-2019-005778

PATIENT
  Age: 36 Year
  Sex: Female
  Weight: 51.25 kg

DRUGS (2)
  1. VIVITROL [Suspect]
     Active Substance: NALTREXONE
     Dosage: 380 MG, QMO
     Route: 030
     Dates: start: 201906, end: 201906
  2. VIVITROL [Suspect]
     Active Substance: NALTREXONE
     Indication: ALCOHOLISM
     Dosage: 380 MG, QMO
     Route: 030
     Dates: start: 201910

REACTIONS (6)
  - Injection site induration [Recovered/Resolved]
  - Injection site abscess [Recovered/Resolved]
  - Injection site cellulitis [Recovered/Resolved]
  - Injection site erythema [Recovered/Resolved]
  - Injection site reaction [Recovered/Resolved]
  - Injection site pain [Recovered/Resolved]

NARRATIVE: CASE EVENT DATE: 20191013
